FAERS Safety Report 20741085 (Version 1)
Quarter: 2022Q2

REPORT INFORMATION
  Report Type: Spontaneous
  Country: US (occurrence: US)
  Receive Date: 20220422
  Receipt Date: 20220422
  Transmission Date: 20220721
  Serious: Yes (Other)
  Sender: FDA-Public Use
  Company Number: US-GLAXOSMITHKLINE-US2022GSK066496

PATIENT
  Age: 16 Year
  Sex: Female

DRUGS (11)
  1. METOCLOPRAMIDE [Suspect]
     Active Substance: METOCLOPRAMIDE
     Indication: Nausea
     Dosage: UNK
  2. METOCLOPRAMIDE [Suspect]
     Active Substance: METOCLOPRAMIDE
     Indication: Vomiting
  3. ALBUTEROL [Suspect]
     Active Substance: ALBUTEROL
     Indication: Nasal congestion
     Dosage: UNK
  4. ACETAMINOPHEN [Suspect]
     Active Substance: ACETAMINOPHEN
     Indication: Headache
     Dosage: UNK
  5. ONDANSETRON [Suspect]
     Active Substance: ONDANSETRON
     Indication: Nausea
     Dosage: UNK
  6. ONDANSETRON [Suspect]
     Active Substance: ONDANSETRON
     Indication: Vomiting
  7. DIPHENHYDRAMINE [Suspect]
     Active Substance: DIPHENHYDRAMINE
     Indication: Swollen tongue
     Dosage: UNK
  8. ESCITALOPRAM [Suspect]
     Active Substance: ESCITALOPRAM OXALATE
     Indication: Depression
     Dosage: UNK
  9. ESCITALOPRAM [Suspect]
     Active Substance: ESCITALOPRAM OXALATE
     Indication: Anxiety
  10. LOW DOSE ASPIRIN [Suspect]
     Active Substance: ASPIRIN
     Indication: Pre-eclampsia
     Dosage: 81 MG, 1D
  11. LOW DOSE ASPIRIN [Suspect]
     Active Substance: ASPIRIN
     Indication: Prophylaxis

REACTIONS (2)
  - Foetal death [Unknown]
  - Exposure during pregnancy [Unknown]
